FAERS Safety Report 10170352 (Version 3)
Quarter: 2014Q2

REPORT INFORMATION
  Report Type: Spontaneous
  Country: US (occurrence: US)
  Receive Date: 20140513
  Receipt Date: 20140612
  Transmission Date: 20141212
  Serious: No
  Sender: FDA-Public Use
  Company Number: US-PFIZER INC-2014126983

PATIENT
  Age: 86 Year
  Sex: Female

DRUGS (1)
  1. CELEBREX [Suspect]
     Indication: BACK PAIN
     Dosage: UNK
     Dates: start: 2014, end: 201405

REACTIONS (3)
  - Expired product administered [Unknown]
  - Malaise [Unknown]
  - Abdominal pain upper [Unknown]
